FAERS Safety Report 16820522 (Version 1)
Quarter: 2019Q3

REPORT INFORMATION
  Report Type: Other
  Country: CA (occurrence: CA)
  Receive Date: 20190918
  Receipt Date: 20190918
  Transmission Date: 20191005
  Serious: Yes (Other)
  Sender: FDA-Public Use
  Company Number: CA-APOTEX-2019AP021662

PATIENT

DRUGS (1)
  1. APO-NALTREXONE [Suspect]
     Active Substance: NALTREXONE HYDROCHLORIDE
     Indication: NERVOUS SYSTEM DISORDER
     Dosage: UNK
     Route: 065

REACTIONS (9)
  - Poisoning [Recovered/Resolved]
  - Vertigo [Recovered/Resolved]
  - Product substitution issue [Recovered/Resolved]
  - Hepatic failure [Recovered/Resolved]
  - Vomiting [Recovered/Resolved]
  - Abdominal pain [Recovered/Resolved]
  - Constipation [Recovered/Resolved]
  - Headache [Recovered/Resolved]
  - Myalgia [Recovered/Resolved]
